FAERS Safety Report 5126615-3 (Version None)
Quarter: 2006Q4

REPORT INFORMATION
  Report Type: 
  Country: None (occurrence: None)
  Receive Date: 20061010
  Receipt Date: 20060925
  Transmission Date: 20070319
  Serious: Yes (Hospitalization)
  Sender: FDA-Public Use
  Company Number: 2006114462

PATIENT
  Age: 56 Year
  Sex: Female
  Weight: 68 kg

DRUGS (2)
  1. SUTENT [Suspect]
     Indication: RENAL DISORDER
     Dosage: (50 MG, QD X 28 DAYS), ORAL; (37.5 MG,QD X 28 DAYS), ORAL
     Route: 048
     Dates: start: 20060113, end: 20060904
  2. SUTENT [Suspect]
     Indication: RENAL DISORDER
     Dosage: (50 MG, QD X 28 DAYS), ORAL; (37.5 MG,QD X 28 DAYS), ORAL
     Route: 048
     Dates: start: 20060918

REACTIONS (1)
  - CEREBROVASCULAR ACCIDENT [None]
